FAERS Safety Report 10934420 (Version 1)
Quarter: 2015Q1

REPORT INFORMATION
  Report Type: Report from Study
  Country: US (occurrence: US)
  Receive Date: 20150320
  Receipt Date: 20150320
  Transmission Date: 20150721
  Serious: Yes (Death)
  Sender: FDA-Public Use
  Company Number: US-FRI-1000074500

PATIENT
  Age: 66 Year
  Sex: Female
  Weight: 67.5 kg

DRUGS (1)
  1. CEFTAROLINE FOSAMIL (OPEN-LABEL) [Suspect]
     Active Substance: CEFTAROLINE FOSAMIL
     Indication: OSTEOMYELITIS
     Dosage: 1800 MG
     Route: 042
     Dates: start: 20141114, end: 20141203

REACTIONS (2)
  - Cardio-respiratory arrest [Fatal]
  - Off label use [Recovered/Resolved]

NARRATIVE: CASE EVENT DATE: 20141114
